FAERS Safety Report 4402802-4 (Version None)
Quarter: 2004Q3

REPORT INFORMATION
  Report Type: 
  Country: None (occurrence: None)
  Receive Date: 20040720
  Receipt Date: 20040720
  Transmission Date: 20050211
  Serious: Yes (Death)
  Sender: FDA-Public Use
  Company Number: None

PATIENT
  Age: 10 Month
  Sex: Female
  Weight: 5.66 kg

DRUGS (2)
  1. CARBOPLATIN [Suspect]
     Indication: BRAIN NEOPLASM
     Dosage: 17 MG/KG X2 DAYS INTRAVENOUS
     Route: 042
     Dates: start: 20040706, end: 20040707
  2. THIOTEPA [Suspect]
     Dosage: 12 MG/KG X2 DAYS INTRAVENOUS
     Route: 042
     Dates: start: 20040706, end: 20040707

REACTIONS (3)
  - BRADYCARDIA [None]
  - CARDIAC ARREST [None]
  - TACHYCARDIA [None]
